FAERS Safety Report 7795393-1 (Version None)
Quarter: 2011Q4

REPORT INFORMATION
  Report Type: 
  Country: None (occurrence: None)
  Receive Date: 20111004
  Receipt Date: 20110829
  Transmission Date: 20120403
  Serious: Yes (Other)
  Sender: FDA-Public Use
  Company Number: US-PERRIGO-11US007005

PATIENT
  Sex: Female
  Weight: 52.154 kg

DRUGS (6)
  1. FISH OIL [Concomitant]
     Indication: ROUTINE HEALTH MAINTENANCE
     Dosage: UNK, DAILY
     Route: 048
  2. RID MOUSSE [Suspect]
     Indication: ARTHROPOD INFESTATION
     Dosage: ONE APPLICATION, SINGLE
     Route: 061
     Dates: start: 20110818, end: 20110818
  3. THYROID HORMONES [Concomitant]
     Indication: THYROID DISORDER
     Dosage: ONE TABLET, DAILY
     Route: 048
  4. LANTUS [Concomitant]
     Indication: TYPE 1 DIABETES MELLITUS
     Dosage: DOSE VARIES, AT BEDTIME DAILY
     Route: 058
  5. HUMALOG [Concomitant]
     Indication: TYPE 1 DIABETES MELLITUS
     Dosage: DOSE VARIES, BEFORE MEALS DAILY
     Route: 058
  6. VITAMINS NOS [Concomitant]
     Indication: ROUTINE HEALTH MAINTENANCE
     Dosage: UNK, DAILY
     Route: 048

REACTIONS (5)
  - OFF LABEL USE [None]
  - ACCIDENTAL EXPOSURE [None]
  - CORNEAL OPACITY [None]
  - VISION BLURRED [None]
  - EYE IRRITATION [None]
